FAERS Safety Report 5386882-8 (Version None)
Quarter: 2007Q3

REPORT INFORMATION
  Report Type: 
  Country: None (occurrence: None)
  Receive Date: 20070713
  Receipt Date: 20070704
  Transmission Date: 20080115
  Serious: Yes (Death, Life-Threatening, Hospitalization, Other)
  Sender: FDA-Public Use
  Company Number: JP-PFIZER INC-2007045614

PATIENT
  Sex: Male
  Weight: 34.5 kg

DRUGS (4)
  1. ZYVOX [Suspect]
     Indication: PNEUMONIA STAPHYLOCOCCAL
     Route: 042
  2. I.V. SOLUTIONS [Concomitant]
     Route: 042
  3. BISOLVON [Concomitant]
     Route: 042
  4. LASIX [Concomitant]
     Route: 042

REACTIONS (3)
  - ASPHYXIA [None]
  - BLOOD SODIUM DECREASED [None]
  - HAEMOGLOBIN DECREASED [None]
